FAERS Safety Report 20954349 (Version 2)
Quarter: 2022Q2

REPORT INFORMATION
  Report Type: Spontaneous
  Country: CA (occurrence: None)
  Receive Date: 20220614
  Receipt Date: 20220616
  Transmission Date: 20220721
  Serious: Yes (Other)
  Sender: FDA-Public Use
  Company Number: CA-ROCHE-3108600

PATIENT
  Age: 36 Year
  Sex: Female

DRUGS (12)
  1. CLONAZEPAM [Suspect]
     Active Substance: CLONAZEPAM
     Indication: Product used for unknown indication
     Route: 048
  2. OCREVUS [Suspect]
     Active Substance: OCRELIZUMAB
     Indication: Relapsing-remitting multiple sclerosis
     Route: 065
  3. PREDNISONE [Suspect]
     Active Substance: PREDNISONE
     Indication: Premedication
     Route: 065
  4. MIRTAZAPINE [Concomitant]
     Active Substance: MIRTAZAPINE
     Indication: Product used for unknown indication
     Route: 065
  5. PREGABALIN [Concomitant]
     Active Substance: PREGABALIN
  6. INDOMETHACIN [Concomitant]
     Active Substance: INDOMETHACIN
  7. FOLIC ACID [Concomitant]
     Active Substance: FOLIC ACID
  8. MAGNESIUM [Concomitant]
     Active Substance: MAGNESIUM
  9. PHENYTOIN [Concomitant]
     Active Substance: PHENYTOIN
  10. OXAZEPAM [Concomitant]
     Active Substance: OXAZEPAM
  11. LAMOTRIGINE [Concomitant]
     Active Substance: LAMOTRIGINE
  12. ZOPICLONE [Concomitant]
     Active Substance: ZOPICLONE

REACTIONS (16)
  - Nasopharyngitis [Unknown]
  - Gastroenteritis viral [Unknown]
  - Fatigue [Unknown]
  - Arthritis [Unknown]
  - Weight increased [Unknown]
  - Immunosuppression [Unknown]
  - Multiple sclerosis [Unknown]
  - Muscle strain [Unknown]
  - Insomnia [Unknown]
  - Influenza [Unknown]
  - Fall [Unknown]
  - Intervertebral disc protrusion [Unknown]
  - Oedema peripheral [Unknown]
  - Multiple sclerosis relapse [Unknown]
  - Hypersomnia [Unknown]
  - Food craving [Unknown]
